FAERS Safety Report 9014639 (Version 4)
Quarter: 2015Q2

REPORT INFORMATION
  Report Type: Spontaneous
  Country: US (occurrence: US)
  Receive Date: 20130115
  Receipt Date: 20150525
  Transmission Date: 20150821
  Serious: Yes (Other)
  Sender: FDA-Public Use
  Company Number: US-JNJFOC-20130102561

PATIENT
  Age: 28 Year
  Sex: Male
  Weight: 86.18 kg

DRUGS (8)
  1. REMICADE [Suspect]
     Active Substance: INFLIXIMAB
     Indication: CROHN^S DISEASE
     Dosage: 5 MG/KG
     Route: 042
     Dates: start: 20130102, end: 20130102
  2. PREDNISONE. [Concomitant]
     Active Substance: PREDNISONE
     Indication: PREMEDICATION
     Route: 065
     Dates: start: 20130102, end: 20130103
  3. CLARITIN [Concomitant]
     Active Substance: LORATADINE
     Indication: PREMEDICATION
     Dosage: 1 HOUR PRIOR TO INFUSION
     Route: 065
     Dates: start: 20130103
  4. STEROIDS NOS [Concomitant]
     Active Substance: UNSPECIFIED INGREDIENT
     Indication: PREMEDICATION
     Dosage: 24 HOURS PRIOR TO INFUSION
     Route: 048
  5. APAP [Concomitant]
     Active Substance: ACETAMINOPHEN
     Indication: PREMEDICATION
     Dosage: 1 HOUR PRIOR TO INFUSION
     Route: 065
     Dates: start: 20130103
  6. SOLU-MEDROL [Concomitant]
     Active Substance: METHYLPREDNISOLONE SODIUM SUCCINATE
     Indication: PREMEDICATION
     Route: 065
     Dates: start: 20130103
  7. REMICADE [Suspect]
     Active Substance: INFLIXIMAB
     Indication: CROHN^S DISEASE
     Route: 042
  8. PEPCID AC [Concomitant]
     Active Substance: FAMOTIDINE
     Indication: PREMEDICATION
     Route: 065
     Dates: start: 20130103

REACTIONS (5)
  - Dyspnoea [Recovered/Resolved with Sequelae]
  - Erythema [Recovered/Resolved with Sequelae]
  - Infusion related reaction [Recovered/Resolved with Sequelae]
  - Throat tightness [Recovered/Resolved with Sequelae]
  - Chills [Recovered/Resolved with Sequelae]

NARRATIVE: CASE EVENT DATE: 20130102
